FAERS Safety Report 16207891 (Version 7)
Quarter: 2021Q1

REPORT INFORMATION
  Report Type: Spontaneous
  Country: US (occurrence: US)
  Receive Date: 20190417
  Receipt Date: 20210202
  Transmission Date: 20210419
  Serious: Yes (Other)
  Sender: FDA-Public Use
  Company Number: US-PFIZER INC-2018346057

PATIENT
  Age: 50 Year
  Sex: Male
  Weight: 113 kg

DRUGS (17)
  1. LYRICA [Suspect]
     Active Substance: PREGABALIN
     Indication: NEURALGIA
  2. LYRICA [Suspect]
     Active Substance: PREGABALIN
     Indication: STIFF PERSON SYNDROME
  3. DILANTIN [Concomitant]
     Active Substance: PHENYTOIN
     Indication: NEUROPATHY PERIPHERAL
  4. TOPAMAX [Concomitant]
     Active Substance: TOPIRAMATE
     Indication: NEUROPATHY PERIPHERAL
  5. PREDNISONE. [Concomitant]
     Active Substance: PREDNISONE
     Dosage: 10 MG, DAILY
  6. DILANTIN [Concomitant]
     Active Substance: PHENYTOIN
     Indication: STIFF PERSON SYNDROME
  7. TOPAMAX [Concomitant]
     Active Substance: TOPIRAMATE
     Indication: STIFF PERSON SYNDROME
  8. LYRICA [Suspect]
     Active Substance: PREGABALIN
     Indication: NEUROPATHY PERIPHERAL
     Dosage: 200 MG, 2X/DAY
     Route: 048
  9. LYRICA [Suspect]
     Active Substance: PREGABALIN
     Indication: GUILLAIN-BARRE SYNDROME
  10. PREDNISONE. [Concomitant]
     Active Substance: PREDNISONE
     Indication: NEURALGIA
     Dosage: 30 MG, UNK
  11. TOPAMAX [Concomitant]
     Active Substance: TOPIRAMATE
     Indication: GUILLAIN-BARRE SYNDROME
     Dosage: 200 MG, 2X/DAY
     Route: 048
  12. TOPAMAX [Concomitant]
     Active Substance: TOPIRAMATE
     Indication: NEURALGIA
  13. PREDNISONE. [Concomitant]
     Active Substance: PREDNISONE
     Indication: GUILLAIN-BARRE SYNDROME
     Dosage: 10 MG, 1X/DAY
     Route: 048
  14. PREDNISONE. [Concomitant]
     Active Substance: PREDNISONE
     Indication: STIFF PERSON SYNDROME
     Dosage: 60 MG, UNK
  15. PREDNISONE. [Concomitant]
     Active Substance: PREDNISONE
     Indication: NEUROPATHY PERIPHERAL
     Dosage: 50 MG, UNK
  16. DILANTIN [Concomitant]
     Active Substance: PHENYTOIN
     Indication: GUILLAIN-BARRE SYNDROME
     Dosage: 100 MG, 1X/DAY
  17. DILANTIN [Concomitant]
     Active Substance: PHENYTOIN
     Indication: NEURALGIA

REACTIONS (4)
  - Drug dependence [Unknown]
  - Visual impairment [Unknown]
  - Personality disorder [Unknown]
  - Cardiac failure [Unknown]
